FAERS Safety Report 5275159-7 (Version None)
Quarter: 2007Q1

REPORT INFORMATION
  Report Type: 
  Country: None (occurrence: None)
  Receive Date: 20061214
  Receipt Date: 20060612
  Transmission Date: 20070707
  Serious: Yes (Hospitalization)
  Sender: FDA-Public Use
  Company Number: 2006075385

PATIENT
  Age: 47 Year
  Sex: Male
  Weight: 87.0906 kg

DRUGS (2)
  1. BEXTRA [Suspect]
     Indication: LOCAL SWELLING
  2. VIOXX (ROFECOXIBI) [Concomitant]

REACTIONS (1)
  - MYOCARDIAL INFARCTION [None]
